FAERS Safety Report 4342445-4 (Version None)
Quarter: 2004Q1

REPORT INFORMATION
  Report Type: 
  Country: None (occurrence: None)
  Receive Date: 20040213
  Receipt Date: 20031028
  Transmission Date: 20041129
  Serious: Yes (Other)
  Sender: FDA-Public Use
  Company Number: 342052

PATIENT
  Age: 42 Year
  Sex: Female

DRUGS (3)
  1. PEGASYS [Suspect]
     Indication: HEPATITIS C
     Dosage: 1 ML, 1 PER WEEK, SUBCUTANEOUS
     Route: 058
     Dates: start: 20021113, end: 20031015
  2. REBETOL [Suspect]
     Indication: HEPATITIS C
     Dosage: ORAL
     Route: 048
  3. REBETRON (INTERFERON ALFA-2B/TIBAVIRIN) [Concomitant]

REACTIONS (3)
  - ASTHENIA [None]
  - ECZEMA [None]
  - HYPOTHYROIDISM [None]
